FAERS Safety Report 17868332 (Version 1)
Quarter: 2020Q2

REPORT INFORMATION
  Report Type: Spontaneous
  Country: DE (occurrence: DE)
  Receive Date: 20200606
  Receipt Date: 20200606
  Transmission Date: 20200714
  Serious: Yes (Other)
  Sender: FDA-Public Use
  Company Number: DE-SUN PHARMACEUTICAL INDUSTRIES LTD-2020R1-249121

PATIENT
  Age: 56 Year
  Sex: Female

DRUGS (2)
  1. CINACALCET. [Suspect]
     Active Substance: CINACALCET
     Indication: HYPERPARATHYROIDISM PRIMARY
     Dosage: 30 MILLIGRAM, DAILY
     Route: 065
  2. CINACALCET. [Suspect]
     Active Substance: CINACALCET
     Dosage: 60 MILLIGRAM, DAILY
     Route: 065

REACTIONS (1)
  - Parathyroid tumour benign [Recovering/Resolving]
